FAERS Safety Report 8837791 (Version 1)
Quarter: 2012Q4

REPORT INFORMATION
  Report Type: 
  Country: US (occurrence: US)
  Receive Date: 20121012
  Receipt Date: 20121012
  Transmission Date: 20130627
  Serious: No
  Sender: FDA-Public Use
  Company Number: US-GLAXOSMITHKLINE-A0984828A

PATIENT
  Sex: Male

DRUGS (1)
  1. JALYN [Suspect]
     Indication: PRODUCT USED FOR UNKNOWN INDICATION

REACTIONS (4)
  - Hot flush [Not Recovered/Not Resolved]
  - Hypotension [Unknown]
  - Dyspepsia [Unknown]
  - Middle insomnia [Unknown]
